FAERS Safety Report 16688768 (Version 1)
Quarter: 2019Q3

REPORT INFORMATION
  Report Type: Spontaneous
  Country: NL (occurrence: NL)
  Receive Date: 20190809
  Receipt Date: 20190809
  Transmission Date: 20191004
  Serious: Yes (Hospitalization)
  Sender: FDA-Public Use
  Company Number: NL-JNJFOC-20190805972

PATIENT
  Age: 73 Year
  Sex: Male

DRUGS (4)
  1. DUROGESIC [Interacting]
     Active Substance: FENTANYL
     Dosage: FORMULATION:PLASTERS; 37.5 MCG/HOUR
     Route: 065
  2. ENZALUTAMIDE [Interacting]
     Active Substance: ENZALUTAMIDE
     Indication: PROSTATE CANCER METASTATIC
     Route: 065
  3. DUROGESIC [Suspect]
     Active Substance: FENTANYL
     Indication: CANCER PAIN
     Route: 065
  4. DUROGESIC [Interacting]
     Active Substance: FENTANYL
     Indication: CANCER PAIN
     Dosage: FORMULATION:PLASTERS
     Route: 065

REACTIONS (2)
  - Drug level decreased [Unknown]
  - Drug interaction [Unknown]
